FAERS Safety Report 25357198 (Version 1)
Quarter: 2025Q2

REPORT INFORMATION
  Report Type: Spontaneous
  Country: ZA (occurrence: ZA)
  Receive Date: 20250526
  Receipt Date: 20250526
  Transmission Date: 20250717
  Serious: Yes (Other)
  Sender: SANOFI AVENTIS
  Company Number: ZA-SA-2025SA148241

PATIENT
  Sex: Female

DRUGS (8)
  1. ARAVA [Suspect]
     Active Substance: LEFLUNOMIDE
     Dates: start: 20121001
  2. METHOTREXATE [Suspect]
     Active Substance: METHOTREXATE
     Dates: start: 20150113
  3. SULFASALAZINE [Suspect]
     Active Substance: SULFASALAZINE
     Indication: Rheumatoid arthritis
     Dates: start: 20100401
  4. SIMPONI [Suspect]
     Active Substance: GOLIMUMAB
     Indication: Rheumatoid arthritis
     Dates: start: 20170913
  5. ENBREL [Concomitant]
     Active Substance: ETANERCEPT
     Dates: start: 20170529, end: 20170629
  6. ORENCIA [Concomitant]
     Active Substance: ABATACEPT
     Dates: start: 20151208, end: 20160727
  7. HUMIRA [Concomitant]
     Active Substance: ADALIMUMAB
     Route: 058
     Dates: start: 20160823, end: 20170206
  8. ACTEMRA [Concomitant]
     Active Substance: TOCILIZUMAB
     Dates: start: 20150429, end: 20160607

REACTIONS (2)
  - Rheumatoid arthritis [Unknown]
  - Malaise [Unknown]
